FAERS Safety Report 9013961 (Version 2)
Quarter: 2013Q4

REPORT INFORMATION
  Report Type: Spontaneous
  Country: SE (occurrence: SE)
  Receive Date: 20130115
  Receipt Date: 20131029
  Transmission Date: 20140711
  Serious: Yes (Hospitalization, Other)
  Sender: FDA-Public Use
  Company Number: SE-JNJFOC-20130102709

PATIENT
  Age: 80 Year
  Sex: Male

DRUGS (4)
  1. RISPERDAL [Suspect]
     Indication: SCHIZOPHRENIA
     Dosage: 1+2 MG EVERY DAY
     Route: 065
     Dates: start: 1998
  2. AKINETON [Concomitant]
     Route: 065
  3. VITAMIN B [Concomitant]
     Dosage: AS NEEDED
     Route: 065
  4. PANODIL [Concomitant]
     Dosage: AS NEEDED
     Route: 065

REACTIONS (3)
  - Pneumonia aspiration [Unknown]
  - Hemiparesis [Unknown]
  - Hypothyroidism [Unknown]
